FAERS Safety Report 14835786 (Version 2)
Quarter: 2018Q2

REPORT INFORMATION
  Report Type: Spontaneous
  Country: AT (occurrence: AT)
  Receive Date: 20180502
  Receipt Date: 20180508
  Transmission Date: 20180711
  Serious: Yes (Other)
  Sender: FDA-Public Use
  Company Number: AT-ASTRAZENECA-2018SE55329

PATIENT
  Age: 70 Year
  Sex: Female

DRUGS (4)
  1. VITAMIN B12 [Concomitant]
     Active Substance: CYANOCOBALAMIN
     Indication: PROPHYLAXIS
  2. OLEOVIT [Concomitant]
     Indication: PROPHYLAXIS
     Dates: start: 201801
  3. CALCIDURAN [Concomitant]
     Indication: PROPHYLAXIS
     Dates: start: 201711
  4. ESOMEPRAZOLE MAGNESIUM. [Suspect]
     Active Substance: ESOMEPRAZOLE MAGNESIUM
     Indication: BARRETT^S OESOPHAGUS
     Route: 048
     Dates: start: 2013

REACTIONS (5)
  - Fall [Unknown]
  - Osteopenia [Unknown]
  - Contusion [Unknown]
  - Pelvic fracture [Not Recovered/Not Resolved]
  - Osteoporosis [Unknown]

NARRATIVE: CASE EVENT DATE: 2018
